FAERS Safety Report 7963510-6 (Version None)
Quarter: 2011Q4

REPORT INFORMATION
  Report Type: 
  Country: None (occurrence: None)
  Receive Date: 20111208
  Receipt Date: 20111018
  Transmission Date: 20120403
  Serious: No
  Sender: FDA-Public Use
  Company Number: US-BAYER-2011-101748

PATIENT
  Age: 66 Year
  Sex: Male
  Weight: 95 kg

DRUGS (5)
  1. LISINOPRIL [Concomitant]
  2. POTASSIUM CHLORIDE [Concomitant]
  3. ASPIRIN [Concomitant]
  4. ALEVE (CAPLET) [Suspect]
     Indication: ARTHRITIS
     Dosage: 2 TAB TWICE DAILY
     Route: 048
  5. TRIAMTERENE AND HYDROCHLOROTHIAZID [Concomitant]

REACTIONS (1)
  - RENAL PAIN [None]
